FAERS Safety Report 6286154-3 (Version None)
Quarter: 2009Q3

REPORT INFORMATION
  Report Type: 
  Country: None (occurrence: None)
  Receive Date: 20090716
  Receipt Date: 20090422
  Transmission Date: 20100115
  Serious: Yes (Hospitalization)
  Sender: FDA-Public Use
  Company Number: 2009BI012333

PATIENT
  Age: 44 Year
  Sex: Male
  Weight: 88.4514 kg

DRUGS (7)
  1. AVONEX [Suspect]
     Indication: MULTIPLE SCLEROSIS
     Dosage: 30 UG;QW;IM
     Route: 030
     Dates: start: 20081101
  2. BENICAR HCT [Concomitant]
  3. CRESTOR [Concomitant]
  4. FOLIC ACID [Concomitant]
  5. NEURONTIN [Concomitant]
  6. NALTREXONE HYDROCHLORIDE [Concomitant]
  7. XANAX [Concomitant]

REACTIONS (6)
  - ARTHRALGIA [None]
  - CEREBRAL CALCIFICATION [None]
  - DEPRESSION [None]
  - INFLUENZA LIKE ILLNESS [None]
  - MOBILITY DECREASED [None]
  - MULTIPLE SCLEROSIS RELAPSE [None]
